FAERS Safety Report 5090002-7 (Version None)
Quarter: 2006Q3

REPORT INFORMATION
  Report Type: 
  Country: None (occurrence: None)
  Receive Date: 20060731
  Receipt Date: 20060703
  Transmission Date: 20061208
  Serious: Yes (Disabling)
  Sender: FDA-Public Use
  Company Number: 200613062BWH

PATIENT
  Age: 75 Year
  Sex: Female

DRUGS (2)
  1. AVELOX [Suspect]
     Indication: INFLUENZA LIKE ILLNESS
     Dosage: 400 MG, QD
     Dates: start: 20051101
  2. FLU SHOT (INFLUENZA VACCINE [INFLUENZA VACCINE]) [Suspect]
     Dosage: ONCE
     Dates: start: 20051101

REACTIONS (2)
  - AGEUSIA [None]
  - ANOSMIA [None]
